FAERS Safety Report 16816621 (Version 2)
Quarter: 2019Q4

REPORT INFORMATION
  Report Type: Spontaneous
  Country: US (occurrence: US)
  Receive Date: 20190917
  Receipt Date: 20191220
  Transmission Date: 20200122
  Serious: No
  Sender: FDA-Public Use
  Company Number: US-GLAXOSMITHKLINE-US2019AMR167648

PATIENT
  Age: 27 Year
  Sex: Male
  Weight: 81.63 kg

DRUGS (3)
  1. LEXAPRO [Concomitant]
     Active Substance: ESCITALOPRAM OXALATE
     Indication: PRODUCT USED FOR UNKNOWN INDICATION
     Dosage: 10 MG, QD
     Route: 048
  2. WELLBUTRIN XL [Suspect]
     Active Substance: BUPROPION HYDROCHLORIDE
     Indication: UNEVALUABLE EVENT
     Dosage: 150 MG, 1D
     Route: 048
     Dates: start: 201908, end: 20190815
  3. WELLBUTRIN XL [Suspect]
     Active Substance: BUPROPION HYDROCHLORIDE
     Indication: GENERALISED ANXIETY DISORDER
     Dosage: (STARTED OVER 4 YEAR AGO) UNK
     Route: 048

REACTIONS (6)
  - Anxiety [Recovering/Resolving]
  - Dizziness [Unknown]
  - Neck pain [Recovering/Resolving]
  - Product quality issue [Unknown]
  - Vertigo [Recovering/Resolving]
  - Feeling abnormal [Recovering/Resolving]

NARRATIVE: CASE EVENT DATE: 201908
